FAERS Safety Report 5478851-4 (Version None)
Quarter: 2007Q4

REPORT INFORMATION
  Report Type: 
  Country: None (occurrence: None)
  Receive Date: 20071002
  Receipt Date: 20070917
  Transmission Date: 20080405
  Serious: Yes (Death)
  Sender: FDA-Public Use
  Company Number: 2007BM000118

PATIENT
  Age: 64 Year
  Sex: Female

DRUGS (2)
  1. PREDNISONE [Suspect]
     Indication: DERMATOMYOSITIS
     Dosage: 80 MG;QD;PO 20MG;QD;PO
     Route: 048
  2. ORAPRED [Suspect]

REACTIONS (7)
  - ACUTE HEPATIC FAILURE [None]
  - FATIGUE [None]
  - HEPATITIS B [None]
  - JAUNDICE [None]
  - NAUSEA [None]
  - RENAL FAILURE ACUTE [None]
  - SPINAL DECOMPRESSION [None]
